FAERS Safety Report 7180264 (Version 2)
Quarter: 2014Q2

REPORT INFORMATION
  Report Type: Spontaneous
  Country: US (occurrence: None)
  Receive Date: 20091104
  Receipt Date: 20140418
  Transmission Date: 20141212
  Serious: Yes (Hospitalization, Other)
  Sender: FDA-Public Use
  Company Number: 2009S1008039

PATIENT
  Age: 54 Year
  Sex: Female

DRUGS (4)
  1. FLEET PHOSPHO-SODA ORAL SALINE LAXATIVE, GINGER-LEMON FLAVOR [Suspect]
     Indication: COLONOSCOPY
     Dosage: PO, 2 IN 24 HOURS
     Route: 048
     Dates: start: 20061210, end: 20061210
  2. LISINOPRIL (LISINOPRIL) [Concomitant]
  3. CELEXA (CITALOPRAM) [Concomitant]
  4. HYDROCHLOROTHIAZIDE [Concomitant]

REACTIONS (5)
  - Nausea [None]
  - Vomiting [None]
  - Diarrhoea [None]
  - Renal failure acute [None]
  - Dizziness [None]
